FAERS Safety Report 16570713 (Version 1)
Quarter: 2019Q3

REPORT INFORMATION
  Report Type: Spontaneous
  Country: US (occurrence: US)
  Receive Date: 20190712
  Receipt Date: 20190712
  Transmission Date: 20191004
  Serious: Yes (Disabling)
  Sender: FDA-Public Use
  Company Number: None

PATIENT
  Age: 56 Year
  Sex: Male
  Weight: 92.25 kg

DRUGS (6)
  1. ATORVASTATIN CALCIUM TABLETS 10 MG GREENSTONE [Suspect]
     Active Substance: ATORVASTATIN CALCIUM
     Indication: BLOOD CHOLESTEROL INCREASED
     Dosage: ?          QUANTITY:1 TABLET(S);?
     Route: 048
     Dates: start: 20181115, end: 20190422
  2. SIMVASTATIN. [Concomitant]
     Active Substance: SIMVASTATIN
  3. ASPIRIN. [Concomitant]
     Active Substance: ASPIRIN
  4. IBUPROFEN. [Concomitant]
     Active Substance: IBUPROFEN
  5. FAMOTIDINE. [Concomitant]
     Active Substance: FAMOTIDINE
  6. SUPHEDRINEAS [Concomitant]

REACTIONS (2)
  - Back pain [None]
  - Drug ineffective [None]

NARRATIVE: CASE EVENT DATE: 20190101
